FAERS Safety Report 5009907-8 (Version None)
Quarter: 2006Q2

REPORT INFORMATION
  Report Type: 
  Country: None (occurrence: None)
  Receive Date: 20060524
  Receipt Date: 20060120
  Transmission Date: 20061013
  Serious: Yes (Hospitalization)
  Sender: FDA-Public Use
  Company Number: FR-BRISTOL-MYERS SQUIBB COMPANY-13255013

PATIENT
  Age: 69 Year
  Sex: Male

DRUGS (6)
  1. ELISOR TABS 20 MG [Suspect]
     Route: 048
     Dates: end: 20051101
  2. METFORMIN HYDROCHLORIDE [Suspect]
  3. GLUCIDORAL [Suspect]
  4. MEDIATOR [Suspect]
  5. VASOBRAL [Concomitant]
  6. DOLIPRANE [Concomitant]

REACTIONS (1)
  - PULMONARY FIBROSIS [None]
